FAERS Safety Report 7603148-3 (Version None)
Quarter: 2011Q3

REPORT INFORMATION
  Report Type: 
  Country: None (occurrence: None)
  Receive Date: 20110712
  Receipt Date: 20110707
  Transmission Date: 20111222
  Serious: Yes (Other)
  Sender: FDA-Public Use
  Company Number: US-AMGEN-USASP2011028279

PATIENT
  Age: 70 Year
  Sex: Male
  Weight: 108.84 kg

DRUGS (9)
  1. FUROSEMIDE [Concomitant]
  2. ENBREL [Suspect]
     Indication: PSORIASIS
     Dosage: 50 MG, QWK
     Dates: start: 20110311, end: 20110520
  3. KLOR-CON [Concomitant]
  4. FOLIC ACID [Concomitant]
  5. CO Q-10 [Concomitant]
  6. PLAVIX [Concomitant]
  7. METOPROLOL [Concomitant]
  8. GLUCOSAMINE [Concomitant]
  9. MAGNESIUM [Concomitant]

REACTIONS (3)
  - ASTHENIA [None]
  - PALPITATIONS [None]
  - PSORIASIS [None]
